FAERS Safety Report 15408582 (Version 2)
Quarter: 2018Q4

REPORT INFORMATION
  Report Type: Report from Study
  Country: US (occurrence: US)
  Receive Date: 20180920
  Receipt Date: 20181029
  Transmission Date: 20190204
  Serious: Yes (Other)
  Sender: FDA-Public Use
  Company Number: PHEH2018US038280

PATIENT
  Age: 53 Year
  Sex: Female
  Weight: 121.9 kg

DRUGS (3)
  1. COSENTYX [Suspect]
     Active Substance: SECUKINUMAB
     Indication: PSORIASIS
     Dosage: 150 MG, AT DAY 28 (DOSE 5) THAN EVERY 4 WEEKS
     Route: 058
     Dates: start: 201808
  2. COSENTYX [Suspect]
     Active Substance: SECUKINUMAB
     Indication: PSORIATIC ARTHROPATHY
  3. COSENTYX [Suspect]
     Active Substance: SECUKINUMAB
     Indication: PARAPSORIASIS

REACTIONS (7)
  - Abdominal distension [Unknown]
  - Inappropriate schedule of product administration [Unknown]
  - Groin abscess [Unknown]
  - Pustular psoriasis [Unknown]
  - Product use in unapproved indication [Unknown]
  - Macule [Recovered/Resolved]
  - Drug ineffective [Unknown]

NARRATIVE: CASE EVENT DATE: 201808
